FAERS Safety Report 6119799-1 (Version None)
Quarter: 2009Q1

REPORT INFORMATION
  Report Type: 
  Country: None (occurrence: None)
  Receive Date: 20090316
  Receipt Date: 20090304
  Transmission Date: 20090719
  Serious: Yes (Hospitalization)
  Sender: FDA-Public Use
  Company Number: JP-PFIZER INC-2009179180

PATIENT

DRUGS (1)
  1. SUNITINIB MALATE [Suspect]
     Indication: GASTROINTESTINAL STROMAL TUMOUR
     Dosage: TDD 50 MG
     Route: 048
     Dates: start: 20081222, end: 20090129

REACTIONS (1)
  - TUMOUR ASSOCIATED FEVER [None]
